FAERS Safety Report 8048997-5 (Version None)
Quarter: 2012Q1

REPORT INFORMATION
  Report Type: 
  Country: None (occurrence: None)
  Receive Date: 20120110
  Receipt Date: 20111226
  Transmission Date: 20120608
  Serious: Yes (Hospitalization)
  Sender: FDA-Public Use
  Company Number: US-2012-10002

PATIENT
  Age: 47 Year
  Sex: Female

DRUGS (5)
  1. THYMOGLOBULIN (ANTIHYMOCYTE IMMUNOGLOBULIN) [Concomitant]
  2. BUSULFAN [Suspect]
     Indication: BONE MARROW CONDITIONING REGIMEN
  3. RITUXIMAB (RITUXIMAB) [Concomitant]
  4. PREDNISOLONE [Concomitant]
  5. FLUDARABINE PHOSPHATE [Concomitant]

REACTIONS (1)
  - HEPATITIS B [None]
